FAERS Safety Report 4601831-5 (Version None)
Quarter: 2005Q1

REPORT INFORMATION
  Report Type: 
  Country: None (occurrence: None)
  Receive Date: 20050131
  Receipt Date: 20041105
  Transmission Date: 20050727
  Serious: Yes (Other)
  Sender: FDA-Public Use
  Company Number: 200417894US

PATIENT
  Age: 27 Year
  Sex: Female
  Weight: 66 kg

DRUGS (4)
  1. KETEK [Suspect]
     Indication: SINUSITIS
     Dosage: 800 (X 10 DAYS) MG QD PO
     Route: 048
  2. PHENYLEPHRINE HYDROCHLORIDE [Concomitant]
  3. GUAIFENESIN (ENTEX LA) [Concomitant]
  4. BUDESONIDE (RHINOCORT) [Concomitant]

REACTIONS (3)
  - HYPERSENSITIVITY [None]
  - OROPHARYNGEAL SWELLING [None]
  - THROAT TIGHTNESS [None]
